FAERS Safety Report 9312919 (Version 3)
Quarter: 2013Q2

REPORT INFORMATION
  Report Type: Report from Study
  Country: BW (occurrence: BW)
  Receive Date: 20130528
  Receipt Date: 20130614
  Transmission Date: 20140414
  Serious: Yes (Hospitalization)
  Sender: FDA-Public Use
  Company Number: BW-GILEAD-2013-0075627

PATIENT
  Age: 45 Year
  Sex: Female

DRUGS (4)
  1. EMTRICITABINE/TENOFOVIR DISOPROXIL FUMARATE [Suspect]
     Indication: PROPHYLAXIS AGAINST HIV INFECTION
     Dosage: 1 DF, QD
     Route: 048
     Dates: start: 20091125
  2. EFAVIRENZ [Suspect]
     Indication: PROPHYLAXIS AGAINST HIV INFECTION
     Dosage: 600 MG, QD
     Route: 048
     Dates: start: 20091125
  3. FERROUS SULPHATE                   /00023503/ [Concomitant]
     Dosage: UNK
     Dates: start: 20121109
  4. FOLATE [Concomitant]
     Dosage: UNK
     Dates: start: 20121109

REACTIONS (1)
  - Uterine leiomyoma [Recovered/Resolved]
